FAERS Safety Report 18779188 (Version 1)
Quarter: 2021Q1

REPORT INFORMATION
  Report Type: Other
  Country: US (occurrence: US)
  Receive Date: 20210125
  Receipt Date: 20210125
  Transmission Date: 20210419
  Serious: Yes (Hospitalization, Other)
  Sender: FDA-Public Use
  Company Number: US-DEXPHARM-20210044

PATIENT
  Age: 83 Year
  Sex: Female

DRUGS (9)
  1. PENTOXIFYLLINE. [Concomitant]
     Active Substance: PENTOXIFYLLINE
  2. HALOPERIDOL. [Interacting]
     Active Substance: HALOPERIDOL
  3. NORTRIPTYLINE [Suspect]
     Active Substance: NORTRIPTYLINE
  4. LORAZEPAM. [Interacting]
     Active Substance: LORAZEPAM
  5. VENLAFAXINE [Interacting]
     Active Substance: VENLAFAXINE HYDROCHLORIDE
  6. ACETYLSALICYLIC ACID [Concomitant]
     Active Substance: ASPIRIN
     Indication: CARDIAC FAILURE
  7. MECLIZINE [Interacting]
     Active Substance: MECLIZINE HYDROCHLORIDE
  8. GABAPENTIN. [Interacting]
     Active Substance: GABAPENTIN
  9. SIMVASTATIN. [Concomitant]
     Active Substance: SIMVASTATIN
     Indication: CARDIAC FAILURE

REACTIONS (3)
  - Delirium [Recovering/Resolving]
  - Fall [Recovering/Resolving]
  - Femoral neck fracture [Recovering/Resolving]
